FAERS Safety Report 19039485 (Version 1)
Quarter: 2021Q1

REPORT INFORMATION
  Report Type: Spontaneous
  Country: US (occurrence: US)
  Receive Date: 20210322
  Receipt Date: 20210322
  Transmission Date: 20210420
  Serious: Yes (Other)
  Sender: FDA-Public Use
  Company Number: US-TAKEDA-2021TUS015985

PATIENT
  Age: 21 Year
  Sex: Male
  Weight: 72.7 kg

DRUGS (4)
  1. ADYNOVATE [Suspect]
     Active Substance: ANTIHEMOPHILIC FACTOR, HUMAN RECOMBINANT
     Indication: FACTOR VIII DEFICIENCY
     Dosage: 3000 INTERNATIONAL UNIT, 2/WEEK
     Route: 042
     Dates: start: 201602
  2. ADYNOVATE [Suspect]
     Active Substance: ANTIHEMOPHILIC FACTOR, HUMAN RECOMBINANT
     Indication: FACTOR VIII DEFICIENCY
     Dosage: 3000 INTERNATIONAL UNIT, 2/WEEK
     Route: 042
     Dates: start: 201602
  3. ADYNOVATE [Suspect]
     Active Substance: ANTIHEMOPHILIC FACTOR, HUMAN RECOMBINANT
     Indication: FACTOR VIII DEFICIENCY
     Dosage: 3000 INTERNATIONAL UNIT, 2/WEEK
     Route: 042
     Dates: start: 201602
  4. VACCINES [Concomitant]
     Active Substance: UNSPECIFIED INGREDIENT
     Indication: COVID-19
     Route: 065

REACTIONS (6)
  - Infusion site pain [Unknown]
  - Chest pain [Unknown]
  - Flushing [Unknown]
  - Loss of consciousness [Recovered/Resolved]
  - Erythema [Unknown]
  - Urticaria [Unknown]

NARRATIVE: CASE EVENT DATE: 20210222
